FAERS Safety Report 7705285-1 (Version None)
Quarter: 2011Q3

REPORT INFORMATION
  Report Type: 
  Country: None (occurrence: None)
  Receive Date: 20110818
  Receipt Date: 20110802
  Transmission Date: 20111222
  Serious: Yes (Death, Hospitalization, Other)
  Sender: FDA-Public Use
  Company Number: 2011MA010838

PATIENT
  Age: 18 Year
  Sex: Female

DRUGS (4)
  1. ALPRAZOLAM [Suspect]
     Indication: SUBSTANCE ABUSE
  2. HEROIN [Suspect]
     Indication: SUBSTANCE ABUSE
  3. COCAINE [Suspect]
     Indication: SUBSTANCE ABUSE
  4. ALCOHOL [Suspect]
     Indication: SUBSTANCE ABUSE

REACTIONS (6)
  - CHEST DISCOMFORT [None]
  - SUBSTANCE ABUSE [None]
  - DEAFNESS NEUROSENSORY [None]
  - HEADACHE [None]
  - TINNITUS [None]
  - OVERDOSE [None]
